FAERS Safety Report 14283001 (Version 1)
Quarter: 2017Q4

REPORT INFORMATION
  Report Type: Report from Study
  Country: ES (occurrence: ES)
  Receive Date: 20171213
  Receipt Date: 20171213
  Transmission Date: 20180321
  Serious: Yes (Other)
  Sender: FDA-Public Use
  Company Number: ES-TEVA-2017-ES-831510

PATIENT
  Sex: Female

DRUGS (2)
  1. COPAXONE [Suspect]
     Active Substance: GLATIRAMER ACETATE
     Indication: RELAPSING-REMITTING MULTIPLE SCLEROSIS
     Dosage: 17.1429 MILLIGRAM/MILLILITERS DAILY;
     Route: 058
     Dates: start: 20160301
  2. ZOLISTAN [Concomitant]

REACTIONS (3)
  - Palpitations [Recovered/Resolved]
  - Asphyxia [Recovered/Resolved]
  - Immediate post-injection reaction [Recovered/Resolved]
